FAERS Safety Report 8933744 (Version 3)
Quarter: 2015Q3

REPORT INFORMATION
  Report Type: Report from Study
  Country: US (occurrence: US)
  Receive Date: 20121129
  Receipt Date: 20150706
  Transmission Date: 20151125
  Serious: Yes (Death)
  Sender: FDA-Public Use
  Company Number: US-ROCHE-1158991

PATIENT
  Sex: Female

DRUGS (12)
  1. ADRIAMYCIN [Concomitant]
     Active Substance: DOXORUBICIN HYDROCHLORIDE
     Route: 065
  2. AVASTIN [Suspect]
     Active Substance: BEVACIZUMAB
     Dosage: RECEIVED ON 09/JUL/2008, 29/JUL/2008
     Route: 042
  3. HERCEPTIN [Suspect]
     Active Substance: TRASTUZUMAB
     Indication: BREAST CANCER
     Dosage: RECEIVED ON 08/MAY/2008, 15/MAY/2008, 29/MAY/2008, 05/JUN/2008, 12/JUN/2008
     Route: 042
  4. DECADRON [Concomitant]
     Active Substance: DEXAMETHASONE
     Route: 042
  5. AVASTIN [Suspect]
     Active Substance: BEVACIZUMAB
     Indication: BREAST CANCER
     Dosage: RECEIVED ON 15/MAY/2008, 29/MAY/2008, 05/JUN/2008, 12/JUN/2008
     Route: 042
     Dates: start: 20080508
  6. HERCEPTIN [Suspect]
     Active Substance: TRASTUZUMAB
     Dosage: RECEIVED ON 08/MAY/2008, 15/MAY/2008, 29/MAY/2008, 05/JUN/2008, 12/JUN/2008
     Route: 042
  7. ADRIAMYCIN [Concomitant]
     Active Substance: DOXORUBICIN HYDROCHLORIDE
     Route: 065
  8. TAGAMET [Concomitant]
     Active Substance: CIMETIDINE
     Route: 065
  9. ALOXI [Concomitant]
     Active Substance: PALONOSETRON HYDROCHLORIDE
     Route: 065
  10. XELODA [Suspect]
     Active Substance: CAPECITABINE
     Indication: NEOPLASM MALIGNANT
     Route: 065
  11. CYTOXAN [Concomitant]
     Active Substance: CYCLOPHOSPHAMIDE
     Route: 065
  12. ZOFRAN [Concomitant]
     Active Substance: ONDANSETRON HYDROCHLORIDE
     Route: 042

REACTIONS (7)
  - Disease progression [Fatal]
  - Hepatotoxicity [Unknown]
  - Alopecia [Unknown]
  - Nausea [Unknown]
  - Vomiting [Unknown]
  - Metastases to liver [Fatal]
  - Fatigue [Unknown]
